FAERS Safety Report 4753989-5 (Version None)
Quarter: 2005Q3

REPORT INFORMATION
  Report Type: 
  Country: None (occurrence: None)
  Receive Date: 20050826
  Receipt Date: 20050817
  Transmission Date: 20060218
  Serious: Yes (Death, Hospitalization)
  Sender: FDA-Public Use
  Company Number: JP-MERCK-0508USA03432

PATIENT
  Age: 29 Year
  Sex: Female

DRUGS (1)
  1. DECADRON [Suspect]
     Indication: PLATELET COUNT DECREASED
     Route: 048

REACTIONS (8)
  - ACCIDENT [None]
  - BRAIN OEDEMA [None]
  - CEREBRAL HAEMORRHAGE [None]
  - COMA [None]
  - HAEMORRHAGIC DIATHESIS [None]
  - HEMIPLEGIA [None]
  - PLATELET COUNT DECREASED [None]
  - TRANSVERSE SINUS THROMBOSIS [None]
